FAERS Safety Report 8120975-7 (Version None)
Quarter: 2012Q1

REPORT INFORMATION
  Report Type: 
  Country: None (occurrence: None)
  Receive Date: 20120208
  Receipt Date: 20120126
  Transmission Date: 20120608
  Serious: Yes (Hospitalization)
  Sender: FDA-Public Use
  Company Number: JP-ELI_LILLY_AND_COMPANY-JP201201008620

PATIENT
  Age: 71 Year
  Sex: Female

DRUGS (3)
  1. FORTEO [Suspect]
     Dosage: UNK
     Route: 058
     Dates: start: 20120107, end: 20120121
  2. FORTEO [Suspect]
     Dosage: UNK
     Route: 058
     Dates: end: 20120102
  3. FORTEO [Suspect]
     Dosage: UNK
     Route: 058
     Dates: start: 20120124

REACTIONS (8)
  - FEELING COLD [None]
  - PYREXIA [None]
  - ARTHRALGIA [None]
  - ABDOMINAL PAIN [None]
  - LOSS OF CONSCIOUSNESS [None]
  - URINARY INCONTINENCE [None]
  - INTESTINAL OBSTRUCTION [None]
  - DECREASED APPETITE [None]
